FAERS Safety Report 4268864-2 (Version None)
Quarter: 2004Q1

REPORT INFORMATION
  Report Type: 
  Country: None (occurrence: None)
  Receive Date: 20040109
  Receipt Date: 20031229
  Transmission Date: 20041129
  Serious: Yes (Hospitalization, Disabling)
  Sender: FDA-Public Use
  Company Number: HQWYE042313MAR03

PATIENT
  Sex: Female

DRUGS (2)
  1. DIMETAPP [Suspect]
     Dosage: AS DIRECTED, ORAL
     Route: 048
     Dates: start: 19960308, end: 19960311
  2. POLY-HISTINE-D (MEPYRAMINE MALEATE/PHENIRAMINE MALEATE/PHENYLPROPRANOL [Suspect]
     Dosage: AS PRESCRIBED, ORAL
     Route: 048
     Dates: start: 19960301, end: 19960308

REACTIONS (2)
  - HAEMORRHAGIC STROKE [None]
  - INJURY [None]
